FAERS Safety Report 4459246-9 (Version None)
Quarter: 2004Q3

REPORT INFORMATION
  Report Type: 
  Country: None (occurrence: None)
  Receive Date: 20040922
  Receipt Date: 20040922
  Transmission Date: 20050211
  Serious: Yes (Other)
  Sender: FDA-Public Use
  Company Number: None

PATIENT
  Age: 37 Year
  Sex: Female

DRUGS (4)
  1. EFFEXOR XR [Suspect]
     Dosage: 37.5 MG DAILY ORAL
     Route: 048
     Dates: start: 20040805, end: 20040901
  2. TRAZODONE HCL [Concomitant]
  3. FLONASE [Concomitant]
  4. KLONOPIN [Concomitant]

REACTIONS (1)
  - CONTUSION [None]
